FAERS Safety Report 25359167 (Version 3)
Quarter: 2025Q2

REPORT INFORMATION
  Report Type: Spontaneous
  Country: US (occurrence: US)
  Receive Date: 20250526
  Receipt Date: 20250630
  Transmission Date: 20250717
  Serious: No
  Sender: Haleon PLC
  Company Number: US-HALEON-2243934

PATIENT
  Age: 40 Year
  Sex: Female

DRUGS (1)
  1. NICORETTE CINNAMON SURGE [Suspect]
     Active Substance: NICOTINE
     Indication: Smoking cessation therapy
     Dates: start: 20250416, end: 20250509

REACTIONS (2)
  - Drug ineffective [Unknown]
  - Product taste abnormal [Unknown]
